FAERS Safety Report 18289379 (Version 2)
Quarter: 2020Q3

REPORT INFORMATION
  Report Type: Report from Study
  Country: TR (occurrence: TR)
  Receive Date: 20200921
  Receipt Date: 20200929
  Transmission Date: 20201103
  Serious: Yes (Death, Life-Threatening, Hospitalization)
  Sender: FDA-Public Use
  Company Number: TR-BIOGEN-2020BI00924431

PATIENT
  Age: 11 Month
  Sex: Female

DRUGS (1)
  1. SPINRAZA [Suspect]
     Active Substance: NUSINERSEN
     Indication: SPINAL MUSCULAR ATROPHY
     Dosage: SPINRAZA 12 MG VIAL
     Route: 065
     Dates: start: 20200505, end: 20200830

REACTIONS (4)
  - Acinetobacter infection [Fatal]
  - COVID-19 [Fatal]
  - Respiratory distress [Fatal]
  - Pneumonia [Fatal]

NARRATIVE: CASE EVENT DATE: 20200830
